FAERS Safety Report 8930531 (Version 2)
Quarter: 2012Q4

REPORT INFORMATION
  Report Type: 
  Country: US (occurrence: US)
  Receive Date: 20121128
  Receipt Date: 20121213
  Transmission Date: 20130627
  Serious: Yes (Other)
  Sender: FDA-Public Use
  Company Number: PHEH2012US010002

PATIENT
  Sex: Female
  Weight: 70.75 kg

DRUGS (21)
  1. GILENYA [Suspect]
     Indication: MULTIPLE SCLEROSIS
     Dosage: 0.5 mg, QD
     Route: 048
     Dates: start: 20111214
  2. SKELAXIN [Suspect]
     Indication: MUSCLE SPASMS
     Dosage: 800 mg, TID
     Route: 048
     Dates: start: 20120301
  3. SKELAXIN [Suspect]
     Dosage: 400 mg, TID
     Route: 048
     Dates: end: 201208
  4. BACLOFEN [Concomitant]
  5. PRILOSEC [Concomitant]
     Dosage: 40 mg, BID
  6. RANITIDINE [Concomitant]
     Dosage: 150 mg, UNK
  7. FOSAMAX [Concomitant]
  8. LEVOTHYROXINE [Concomitant]
     Dosage: 125 mg, UNK
  9. LORATADINE [Concomitant]
  10. OXYBUTYNIN [Concomitant]
     Dosage: 5 mg, QID
  11. PRAMIPEXOLE [Concomitant]
  12. METOPROLOL [Concomitant]
     Dosage: 25 mg, UNK
  13. GABAPENTIN [Concomitant]
     Dosage: 600 mg, QID
  14. PLAVIX [Concomitant]
     Dosage: 75 mg, UNK
  15. OCUVITE [Concomitant]
  16. MULTIPLE SUPPLEMENTS [Concomitant]
  17. LEXAPRO [Concomitant]
  18. PRAVASTATIN [Concomitant]
     Dosage: 50 mg, UNK
  19. BIOTIN [Concomitant]
  20. FLONASE [Concomitant]
  21. ALBUTEROL [Concomitant]

REACTIONS (7)
  - Oxygen saturation decreased [Recovered/Resolved]
  - Dysphagia [Unknown]
  - Drug intolerance [Unknown]
  - Fatigue [Unknown]
  - Cough [Recovering/Resolving]
  - Pyrexia [Recovered/Resolved]
  - Influenza [Recovered/Resolved]
